FAERS Safety Report 6618320-9 (Version None)
Quarter: 2010Q1

REPORT INFORMATION
  Report Type: 
  Country: None (occurrence: None)
  Receive Date: 20100302
  Receipt Date: 20100216
  Transmission Date: 20100710
  Serious: Yes (Death, Other)
  Sender: FDA-Public Use
  Company Number: MC201000056

PATIENT

DRUGS (2)
  1. ANGIOMAX [Suspect]
     Indication: PERCUTANEOUS CORONARY INTERVENTION
     Dosage: 075 MG/KG, BOLUS, INTRAVENOUS; 1.75 MG/KG, HR, INTRAVENOUS
     Route: 042
  2. CLOPIDOGREL [Suspect]
     Indication: PERCUTANEOUS CORONARY INTERVENTION

REACTIONS (9)
  - ARTERIAL INJURY [None]
  - CEREBROVASCULAR ACCIDENT [None]
  - HAEMOGLOBIN DECREASED [None]
  - HAEMORRHAGE [None]
  - PERCUTANEOUS CORONARY INTERVENTION [None]
  - POST PROCEDURAL MYOCARDIAL INFARCTION [None]
  - THROMBOSIS IN DEVICE [None]
  - TROPONIN I INCREASED [None]
  - VASCULAR INJURY [None]
